FAERS Safety Report 6005612-X (Version None)
Quarter: 2008Q4

REPORT INFORMATION
  Report Type: 
  Country: None (occurrence: None)
  Receive Date: 20081216
  Receipt Date: 20081216
  Transmission Date: 20090506
  Serious: No
  Sender: FDA-Public Use
  Company Number: None

PATIENT
  Sex: Male
  Weight: 86.1834 kg

DRUGS (1)
  1. AVODART [Suspect]
     Indication: PROSTATITIS
     Dosage: 0.5MG 1 DAILY PO
     Route: 048
     Dates: start: 20070601, end: 20081115

REACTIONS (1)
  - MUSCULOSKELETAL PAIN [None]
